FAERS Safety Report 4815722-8 (Version None)
Quarter: 2005Q4

REPORT INFORMATION
  Report Type: 
  Country: None (occurrence: None)
  Receive Date: 20051026
  Receipt Date: 20051011
  Transmission Date: 20060501
  Serious: Yes (Hospitalization)
  Sender: FDA-Public Use
  Company Number: USA0510110667

PATIENT
  Age: 69 Year
  Sex: Female

DRUGS (1)
  1. FORTEO [Suspect]
     Indication: SPINAL FRACTURE

REACTIONS (4)
  - DEHYDRATION [None]
  - FLUID INTAKE REDUCED [None]
  - NEOPLASM [None]
  - SPINAL DISORDER [None]
